FAERS Safety Report 9705800 (Version 3)
Quarter: 2015Q3

REPORT INFORMATION
  Report Type: Spontaneous
  Country: US (occurrence: US)
  Receive Date: 20131122
  Receipt Date: 20150803
  Transmission Date: 20151125
  Serious: Yes (Other)
  Sender: FDA-Public Use
  Company Number: US-GILEAD-2008-0017245

PATIENT
  Age: 78 Year
  Sex: Female

DRUGS (12)
  1. POTASSIUM [Concomitant]
     Active Substance: POTASSIUM
  2. LETAIRIS [Suspect]
     Active Substance: AMBRISENTAN
     Indication: PULMONARY ARTERIAL HYPERTENSION
     Route: 048
     Dates: start: 20080624, end: 20081002
  3. TOPROL XL [Concomitant]
     Active Substance: METOPROLOL SUCCINATE
  4. LISINOPRIL. [Concomitant]
     Active Substance: LISINOPRIL
  5. COUMADIN [Concomitant]
     Active Substance: WARFARIN SODIUM
  6. LETAIRIS [Suspect]
     Active Substance: AMBRISENTAN
     Route: 048
     Dates: start: 20071102, end: 200803
  7. FUROSEMIDE. [Concomitant]
     Active Substance: FUROSEMIDE
  8. CALTRATE [Concomitant]
     Active Substance: CALCIUM CARBONATE
  9. LETAIRIS [Suspect]
     Active Substance: AMBRISENTAN
     Route: 048
     Dates: start: 200803, end: 20080624
  10. DIGOXIN. [Concomitant]
     Active Substance: DIGOXIN
  11. SYNTHROID [Concomitant]
     Active Substance: LEVOTHYROXINE SODIUM
  12. MECLIZINE [Concomitant]
     Active Substance: MECLIZINE\MECLIZINE HYDROCHLORIDE

REACTIONS (1)
  - Peripheral swelling [Not Recovered/Not Resolved]

NARRATIVE: CASE EVENT DATE: 200712
